FAERS Safety Report 17802052 (Version 1)
Quarter: 2020Q2

REPORT INFORMATION
  Report Type: Report from Study
  Country: US (occurrence: US)
  Receive Date: 20200519
  Receipt Date: 20200519
  Transmission Date: 20200714
  Serious: Yes (Hospitalization)
  Sender: FDA-Public Use
  Company Number: US-ROCHE-2599462

PATIENT
  Sex: Male

DRUGS (1)
  1. ESBRIET [Suspect]
     Active Substance: PIRFENIDONE
     Indication: PRODUCT USED FOR UNKNOWN INDICATION
     Dosage: TAKE 2 TABLET(S) BY MOUTH 3 TIMES A DAY
     Route: 048

REACTIONS (4)
  - Lung disorder [Unknown]
  - Dyspnoea [Unknown]
  - Asthenia [Unknown]
  - Hypoacusis [Unknown]
